FAERS Safety Report 10573284 (Version 2)
Quarter: 2014Q4

REPORT INFORMATION
  Report Type: Spontaneous
  Country: BR (occurrence: BR)
  Receive Date: 20141110
  Receipt Date: 20141119
  Transmission Date: 20150529
  Serious: Yes (Other)
  Sender: FDA-Public Use
  Company Number: BR-NOVOPROD-427696

PATIENT
  Age: 50 Year
  Sex: Male
  Weight: 120 kg

DRUGS (1)
  1. VICTOZA [Suspect]
     Active Substance: LIRAGLUTIDE
     Indication: TYPE 2 DIABETES MELLITUS
     Dosage: 1.8 MG
     Route: 065
     Dates: start: 201402

REACTIONS (3)
  - Cholelithiasis [Unknown]
  - Weight decreased [Unknown]
  - Cholelithiasis [Unknown]

NARRATIVE: CASE EVENT DATE: 201402
